FAERS Safety Report 12917792 (Version 1)
Quarter: 2016Q4

REPORT INFORMATION
  Report Type: Spontaneous
  Country: US (occurrence: US)
  Receive Date: 20161107
  Receipt Date: 20161107
  Transmission Date: 20170207
  Serious: No
  Sender: FDA-Public Use
  Company Number: US-PFIZER INC-2016513118

PATIENT

DRUGS (3)
  1. METAMUCIL [Interacting]
     Active Substance: PLANTAGO SEED
     Dosage: UNK UNK, DAILY
  2. MIRALAX [Suspect]
     Active Substance: POLYETHYLENE GLYCOL 3350
     Dosage: UNK UNK, DAILY
  3. LEVOXYL [Suspect]
     Active Substance: LEVOTHYROXINE SODIUM
     Dosage: 0.05 MG, DAILY

REACTIONS (2)
  - Constipation [Unknown]
  - Drug interaction [Unknown]
